FAERS Safety Report 7395280-7 (Version None)
Quarter: 2011Q2

REPORT INFORMATION
  Report Type: 
  Country: None (occurrence: None)
  Receive Date: 20110405
  Receipt Date: 20110330
  Transmission Date: 20111010
  Serious: No
  Sender: FDA-Public Use
  Company Number: US-PFIZER INC-2011071416

PATIENT
  Sex: Male
  Weight: 99.773 kg

DRUGS (1)
  1. VIAGRA [Suspect]
     Indication: ERECTILE DYSFUNCTION
     Dosage: 200 MG, AS NEEDED
     Route: 048

REACTIONS (3)
  - DRUG INEFFECTIVE [None]
  - BLOOD PH INCREASED [None]
  - INTENTIONAL DRUG MISUSE [None]
